FAERS Safety Report 13757701 (Version 6)
Quarter: 2018Q3

REPORT INFORMATION
  Report Type: Report from Study
  Country: None (occurrence: US)
  Receive Date: 20170717
  Receipt Date: 20180913
  Transmission Date: 20181010
  Serious: Yes (Hospitalization, Other)
  Sender: FDA-Public Use
  Company Number: US-ABBVIE-17K-163-2035052-00

PATIENT
  Sex: Male

DRUGS (2)
  1. HUMIRA [Suspect]
     Active Substance: ADALIMUMAB
     Indication: PSORIATIC ARTHROPATHY
     Route: 058
     Dates: start: 201706, end: 201707
  2. HUMIRA [Suspect]
     Active Substance: ADALIMUMAB
     Indication: PSORIASIS
     Route: 058
     Dates: start: 2017, end: 201711

REACTIONS (4)
  - Arterial occlusive disease [Recovered/Resolved]
  - Dyspnoea [Unknown]
  - Cardiac disorder [Unknown]
  - Cardiac stress test abnormal [Recovered/Resolved]

NARRATIVE: CASE EVENT DATE: 2017
